FAERS Safety Report 25978165 (Version 1)
Quarter: 2025Q4

REPORT INFORMATION
  Report Type: Spontaneous
  Country: CN (occurrence: CN)
  Receive Date: 20251030
  Receipt Date: 20251030
  Transmission Date: 20260118
  Serious: Yes (Other)
  Sender: NOVARTIS
  Company Number: CN-002147023-NVSC2025CN162995

PATIENT
  Age: 95 Year
  Sex: Female
  Weight: 56 kg

DRUGS (1)
  1. SACUBITRIL\VALSARTAN [Suspect]
     Active Substance: SACUBITRIL\VALSARTAN
     Indication: Epistaxis
     Dosage: 50.000 MG, QD
     Route: 048
     Dates: start: 20251007, end: 20251008

REACTIONS (8)
  - Hypotension [Unknown]
  - Dizziness [Unknown]
  - Palpitations [Unknown]
  - Atrial fibrillation [Unknown]
  - Electrocardiogram ST segment depression [Unknown]
  - Electrocardiogram Q wave abnormal [Unknown]
  - Depressed mood [Unknown]
  - Off label use [Unknown]

NARRATIVE: CASE EVENT DATE: 20251007
